FAERS Safety Report 8985963 (Version 1)
Quarter: 2012Q4

REPORT INFORMATION
  Report Type: 
  Country: US (occurrence: US)
  Receive Date: 20121226
  Receipt Date: 20121226
  Transmission Date: 20130627
  Serious: No
  Sender: FDA-Public Use
  Company Number: US-ABBOTT-12P-163-0892261-00

PATIENT
  Sex: Male

DRUGS (2)
  1. LUPRON DEPOT 22.5 MG [Suspect]
     Indication: PROSTATE CANCER
  2. LUPRON DEPOT 22.5 MG [Suspect]
     Dates: start: 201112

REACTIONS (3)
  - Hot flush [Unknown]
  - Sleep disorder [Unknown]
  - Hyperhidrosis [Unknown]
